FAERS Safety Report 15866835 (Version 1)
Quarter: 2019Q1

REPORT INFORMATION
  Report Type: Other
  Country: IN (occurrence: IN)
  Receive Date: 20190125
  Receipt Date: 20190125
  Transmission Date: 20190417
  Serious: Yes (Life-Threatening, Hospitalization)
  Sender: FDA-Public Use
  Company Number: IN-ORCHID HEALTHCARE-2061750

PATIENT
  Age: 22 Year
  Sex: Female

DRUGS (1)
  1. AMLODIPINE BESYLATE. [Suspect]
     Active Substance: AMLODIPINE BESYLATE
     Route: 048

REACTIONS (16)
  - Hypotension [Recovered/Resolved]
  - Acute kidney injury [Recovered/Resolved]
  - Pleural effusion [Recovered/Resolved]
  - Overdose [Recovered/Resolved]
  - Ascites [Recovered/Resolved]
  - Heart rate increased [Recovered/Resolved]
  - Oedema peripheral [Recovered/Resolved]
  - Vomiting [Recovered/Resolved]
  - Dyspnoea [Recovered/Resolved]
  - Oxygen saturation decreased [Recovered/Resolved]
  - Respiratory failure [Recovered/Resolved]
  - Shock [Recovered/Resolved]
  - Suicide attempt [Recovered/Resolved]
  - Urine output decreased [Recovered/Resolved]
  - Tachypnoea [Recovered/Resolved]
  - Sinus tachycardia [Recovered/Resolved]
